FAERS Safety Report 4730248-8 (Version None)
Quarter: 2005Q3

REPORT INFORMATION
  Report Type: 
  Country: None (occurrence: None)
  Receive Date: 20050729
  Receipt Date: 20050729
  Transmission Date: 20060218
  Serious: Yes (Other)
  Sender: FDA-Public Use
  Company Number: None

PATIENT
  Sex: Female
  Weight: 63.5036 kg

DRUGS (2)
  1. LIPITOR [Suspect]
     Dosage: 40MG QD ORAL
     Route: 048
  2. STARLIX [Suspect]
     Dosage: 60MG TID ORAL
     Route: 048

REACTIONS (4)
  - BACK PAIN [None]
  - DRUG INTERACTION [None]
  - MUSCLE SPASMS [None]
  - MYALGIA [None]
